FAERS Safety Report 16242285 (Version 3)
Quarter: 2019Q3

REPORT INFORMATION
  Report Type: Report from Study
  Country: None (occurrence: DE)
  Receive Date: 20190426
  Receipt Date: 20190916
  Transmission Date: 20191004
  Serious: Yes (Other)
  Sender: FDA-Public Use
  Company Number: DE-KADMON PHARMACEUTICALS, LLC-KAD-201811-01397

PATIENT
  Age: 53 Year
  Sex: Male
  Weight: 104 kg

DRUGS (16)
  1. RIBAVIRIN. [Suspect]
     Active Substance: RIBAVIRIN
     Indication: CHRONIC HEPATITIS C
     Dosage: 1200 MG (600 MG; BID)
     Route: 048
     Dates: start: 20141016, end: 20150108
  2. CORTISON [Concomitant]
     Active Substance: CORTISONE ACETATE
     Dates: start: 20150108
  3. ANAESTHESULF [Concomitant]
     Dates: start: 20150108
  4. PREZISTA [Suspect]
     Active Substance: DARUNAVIR ETHANOLATE
     Indication: HIV INFECTION
     Dosage: 800 MG
     Route: 048
     Dates: start: 20120329
  5. RAMIPRIL. [Concomitant]
     Active Substance: RAMIPRIL
     Dosage: 1 DOSAGE FORM
  6. DAKLINZA [Suspect]
     Active Substance: DACLATASVIR
     Indication: CHRONIC HEPATITIS C
     Dosage: 60 MG
     Route: 048
     Dates: start: 20141016, end: 20150108
  7. LAUROMACROGOL 400 [Concomitant]
     Active Substance: POLIDOCANOL
     Dates: start: 20150108
  8. SOVALDI [Suspect]
     Active Substance: SOFOSBUVIR
     Indication: CHRONIC HEPATITIS C
     Dosage: 400 MG
     Route: 048
     Dates: start: 20141016, end: 20150108
  9. ACICLOVIR [Concomitant]
     Active Substance: ACYCLOVIR
     Indication: GENITAL HERPES SIMPLEX
     Dosage: 800 MG
     Dates: start: 20150108, end: 20150215
  10. ISENTRESS [Suspect]
     Active Substance: RALTEGRAVIR POTASSIUM
     Indication: HIV INFECTION
     Dosage: 800 MG (400 MG, 2 IN 1 D)
     Route: 048
     Dates: start: 20120329
  11. RAMIPRIL. [Concomitant]
     Active Substance: RAMIPRIL
     Indication: CARDIOVASCULAR EVENT PROPHYLAXIS
     Dosage: 5 MG (1 DOSAGE FORM = 5/25 MG TAKEN PRIOR, DURING AND AFTER THERAPY)
  12. BISOPROLOL [Concomitant]
     Active Substance: BISOPROLOL
     Dosage: 5 MG
     Dates: start: 20061101
  13. NORVIR [Suspect]
     Active Substance: RITONAVIR
     Indication: HIV INFECTION
     Dosage: 100 MG
     Route: 048
     Dates: start: 20120329
  14. METFORMIN [Concomitant]
     Active Substance: METFORMIN HYDROCHLORIDE
     Indication: HYPERGLYCAEMIA
     Dates: start: 20150121
  15. ATROVENT [Concomitant]
     Active Substance: IPRATROPIUM BROMIDE
     Dosage: WHEN NECESSARY (1, 1)
     Dates: start: 20141125, end: 20141231
  16. PARACODIN [Concomitant]
     Dosage: WHEN NECESSARY
     Dates: start: 20141210, end: 20141217

REACTIONS (14)
  - Genital herpes [Recovered/Resolved]
  - Insomnia [Recovered/Resolved]
  - Oropharyngeal pain [Recovered/Resolved]
  - Diarrhoea [Recovered/Resolved]
  - Hyperglycaemia [Recovered/Resolved]
  - Genital herpes simplex [Recovered/Resolved]
  - Thrombosis [Unknown]
  - Embolism [Unknown]
  - Influenza [Recovered/Resolved]
  - Cough [Recovered/Resolved]
  - Product dose omission [Unknown]
  - Fatigue [Recovered/Resolved]
  - Candida infection [Recovered/Resolved]
  - Medication error [Unknown]

NARRATIVE: CASE EVENT DATE: 20141125
